FAERS Safety Report 7537183-0 (Version None)
Quarter: 2011Q2

REPORT INFORMATION
  Report Type: 
  Country: None (occurrence: None)
  Receive Date: 20110524
  Receipt Date: 20110415
  Transmission Date: 20111010
  Serious: No
  Sender: FDA-Public Use
  Company Number: 031470

PATIENT
  Sex: Female

DRUGS (7)
  1. OXYCODONE HCL [Concomitant]
     Dates: start: 20110211
  2. PREDNISONE [Concomitant]
     Dates: start: 20110305
  3. VISTARIL [Concomitant]
     Dates: start: 20110211
  4. CIMZIA [Suspect]
     Indication: CROHN'S DISEASE
     Dosage: SUBCUTANEOUS
     Route: 058
     Dates: start: 20110211, end: 20110311
  5. PROTONIX [Concomitant]
     Dates: start: 20110211
  6. LOMOTIL [Concomitant]
     Dates: start: 20110211
  7. KADIAN [Concomitant]
     Dates: start: 20110311

REACTIONS (5)
  - ABDOMINAL DISTENSION [None]
  - DIARRHOEA [None]
  - ABDOMINAL PAIN [None]
  - GASTROINTESTINAL SOUNDS ABNORMAL [None]
  - INCISIONAL HERNIA REPAIR [None]
